FAERS Safety Report 4612772-1 (Version None)
Quarter: 2005Q1

REPORT INFORMATION
  Report Type: 
  Country: None (occurrence: None)
  Receive Date: 20050318
  Receipt Date: 20041111
  Transmission Date: 20050727
  Serious: Yes (Life-Threatening, Hospitalization, Disabling, Other)
  Sender: FDA-Public Use
  Company Number: US-MERCK-0411USA02155

PATIENT
  Age: 48 Year
  Sex: Male

DRUGS (6)
  1. VIOXX [Suspect]
     Indication: ARTHRALGIA
     Route: 048
     Dates: start: 20000101, end: 20030101
  2. VERAPAMIL [Concomitant]
     Route: 065
  3. SINGULAIR [Concomitant]
     Route: 048
  4. ADVAIR DISKUS 100/50 [Concomitant]
     Route: 065
  5. MAXALT [Concomitant]
     Route: 065
  6. IMITREX [Concomitant]
     Route: 055

REACTIONS (1)
  - GLIOBLASTOMA [None]
